FAERS Safety Report 6880390-0 (Version None)
Quarter: 2010Q3

REPORT INFORMATION
  Report Type: 
  Country: None (occurrence: None)
  Receive Date: 20100727
  Receipt Date: 20100721
  Transmission Date: 20110219
  Serious: Yes (Other)
  Sender: FDA-Public Use
  Company Number: A0775480A

PATIENT
  Age: 43 Year
  Sex: Male

DRUGS (3)
  1. AVANDIA [Suspect]
     Dosage: 4MG TWICE PER DAY
     Route: 048
     Dates: start: 20040301, end: 20060301
  2. AVANDAMET [Suspect]
     Route: 048
     Dates: start: 20040301, end: 20060301
  3. AVANDARYL [Suspect]
     Route: 048
     Dates: start: 20040301, end: 20060301

REACTIONS (1)
  - MYOCARDIAL INFARCTION [None]
